FAERS Safety Report 7587067-7 (Version None)
Quarter: 2011Q3

REPORT INFORMATION
  Report Type: 
  Country: None (occurrence: None)
  Receive Date: 20110701
  Receipt Date: 20110620
  Transmission Date: 20111222
  Serious: Yes (Other)
  Sender: FDA-Public Use
  Company Number: PHHY2010MX50930

PATIENT
  Age: 72 Year
  Sex: Female

DRUGS (7)
  1. SINERGIX [Concomitant]
     Dosage: UNK
  2. RANITIDINE [Concomitant]
     Dosage: UNK
  3. OMEPRAZOLE [Concomitant]
  4. PREXIGE [Concomitant]
     Dosage: UNK
  5. DOLO-NEUROBION [Concomitant]
  6. ZOLEDRONIC ACID [Suspect]
     Indication: OSTEOPOROSIS
     Dosage: 5MG/100ML PER YEAR
     Route: 042
     Dates: start: 20100401
  7. ARCOXIA [Concomitant]

REACTIONS (5)
  - MYALGIA [None]
  - UPPER LIMB FRACTURE [None]
  - ARTHRALGIA [None]
  - PAIN IN EXTREMITY [None]
  - FALL [None]
